FAERS Safety Report 6719817-3 (Version None)
Quarter: 2010Q2

REPORT INFORMATION
  Report Type: 
  Country: None (occurrence: None)
  Receive Date: 20100511
  Receipt Date: 20100428
  Transmission Date: 20101027
  Serious: Yes (Hospitalization, Other)
  Sender: FDA-Public Use
  Company Number: PHHY2010US22890

PATIENT
  Sex: Male
  Weight: 101.1 kg

DRUGS (20)
  1. EXJADE [Suspect]
     Indication: MYELOFIBROSIS
     Route: 048
  2. EXJADE [Suspect]
     Indication: IRON OVERLOAD
  3. HYDREA [Concomitant]
     Route: 048
  4. MELATONIN [Concomitant]
     Route: 048
  5. TYLENOL-500 [Concomitant]
     Route: 048
  6. PRILOSEC [Concomitant]
     Dosage: 20 MG, BID
     Route: 048
  7. MIRAPEX [Concomitant]
     Dosage: 1 DF, QD
     Route: 048
  8. FOLIC ACID [Concomitant]
     Dosage: 1 DF, QD
     Route: 048
  9. ACYCLOVIR [Concomitant]
     Dosage: 2 DF, BID
     Route: 048
  10. FLUCONAZOLE [Concomitant]
     Dosage: 2 DF, QD
     Route: 048
  11. LORAZEPAM [Concomitant]
     Dosage: 1-2 DF EVERY 4 HRS AS NEEDED
     Route: 048
  12. PREDNISONE [Concomitant]
     Dosage: 25 MG, BID
     Route: 048
  13. CYCLOSPORINE [Concomitant]
     Dosage: 1 DF, BID
     Route: 048
  14. NEUPOGEN [Concomitant]
  15. FUROSEMIDE [Concomitant]
     Dosage: 40 MG, UNK
     Route: 042
     Dates: start: 20100413
  16. METOLAZONE [Concomitant]
     Dosage: 5 MG, UNK
     Dates: start: 20100414
  17. METHOTREXATE [Concomitant]
     Route: 042
  18. METHYLPREDNISOLONE 4MG TAB [Concomitant]
     Dosage: 0.5 MG/KG, UNK
     Route: 042
  19. BUSULFEX [Concomitant]
     Dosage: 1 MG/KG, Q6H
  20. CYCLOPHOSPHAMIDE [Concomitant]
     Dosage: 60 MG/KG, UNK
     Route: 042

REACTIONS (28)
  - ALLOIMMUNISATION [None]
  - ANAEMIA [None]
  - BLOOD ALBUMIN DECREASED [None]
  - BLOOD CALCIUM DECREASED [None]
  - BLOOD CHLORIDE DECREASED [None]
  - BLOOD MAGNESIUM DECREASED [None]
  - BLOOD POTASSIUM INCREASED [None]
  - BLOOD UREA INCREASED [None]
  - BONE MARROW TRANSPLANT [None]
  - CATHETER PLACEMENT [None]
  - CHOLECYSTITIS [None]
  - CHOLELITHIASIS [None]
  - DIARRHOEA [None]
  - FEBRILE NEUTROPENIA [None]
  - HAEMATOCRIT DECREASED [None]
  - HAEMOGLOBIN DECREASED [None]
  - HEPATIC FAILURE [None]
  - HYPERBILIRUBINAEMIA [None]
  - HYPERTENSION [None]
  - HYPONATRAEMIA [None]
  - INAPPROPRIATE ANTIDIURETIC HORMONE SECRETION [None]
  - LYMPHOCYTE COUNT DECREASED [None]
  - MONOCYTE COUNT INCREASED [None]
  - MUCOSAL INFLAMMATION [None]
  - MYELOFIBROSIS [None]
  - PROTEIN TOTAL DECREASED [None]
  - STREPTOCOCCAL BACTERAEMIA [None]
  - THROMBOCYTOPENIA [None]
